FAERS Safety Report 18368467 (Version 1)
Quarter: 2020Q4

REPORT INFORMATION
  Report Type: Report from Study
  Country: None (occurrence: US)
  Receive Date: 20201010
  Receipt Date: 20201010
  Transmission Date: 20210114
  Serious: Yes (Other)
  Sender: FDA-Public Use
  Company Number: US-ABBVIE-20K-163-3596275-00

PATIENT
  Sex: Female

DRUGS (2)
  1. HUMIRA [Suspect]
     Active Substance: ADALIMUMAB
     Indication: HIDRADENITIS
     Dosage: CITRATE FREE
     Route: 058
     Dates: end: 202008
  2. HUMIRA [Suspect]
     Active Substance: ADALIMUMAB
     Dosage: CITRATE FREE
     Route: 058
     Dates: start: 202009

REACTIONS (11)
  - Accident [Unknown]
  - Immunosuppression [Not Recovered/Not Resolved]
  - Polycystic ovaries [Unknown]
  - Autoimmune thyroid disorder [Unknown]
  - Dermatitis contact [Unknown]
  - Rash papular [Recovered/Resolved]
  - Autoimmune disorder [Unknown]
  - Erythema [Unknown]
  - Drug ineffective [Unknown]
  - Hidradenitis [Not Recovered/Not Resolved]
  - COVID-19 [Unknown]

NARRATIVE: CASE EVENT DATE: 2019
